FAERS Safety Report 9462584 (Version 1)
Quarter: 2013Q3

REPORT INFORMATION
  Report Type: Report from Study
  Country: JP (occurrence: JP)
  Receive Date: 20130816
  Receipt Date: 20130816
  Transmission Date: 20140515
  Serious: Yes (Hospitalization)
  Sender: FDA-Public Use
  Company Number: JP-BRISTOL-MYERS SQUIBB COMPANY-15456437

PATIENT
  Age: 67 Year
  Sex: Male
  Weight: 63.8 kg

DRUGS (4)
  1. BARACLUDE [Suspect]
     Indication: CHRONIC HEPATITIS B
     Route: 048
     Dates: start: 20080225
  2. PARIET [Concomitant]
     Dosage: TABS, 8APR-14APR09, 21APR-27APR10:20MG/DAY
     Route: 048
     Dates: start: 20090408
  3. SELBEX [Concomitant]
     Dosage: CAPS,8APR-14APR09, 21APR-27APR10:20MG/DAY
     Route: 048
     Dates: start: 20090408
  4. NAIXAN [Concomitant]
     Dosage: TABS, 8APR-14APR09, 21APR-27APR10:20MG/DAY
     Route: 048
     Dates: start: 20090408

REACTIONS (2)
  - Hepatocellular carcinoma [Recovering/Resolving]
  - Atrial fibrillation [Recovered/Resolved]
